FAERS Safety Report 6309047-1 (Version None)
Quarter: 2009Q3

REPORT INFORMATION
  Report Type: 
  Country: None (occurrence: None)
  Receive Date: 20090814
  Receipt Date: 20090806
  Transmission Date: 20100115
  Serious: Yes (Hospitalization)
  Sender: FDA-Public Use
  Company Number: US-BIOGENIDEC-2008BI013277

PATIENT
  Age: 53 Year
  Sex: Female
  Weight: 36 kg

DRUGS (2)
  1. AVONEX [Suspect]
     Indication: MULTIPLE SCLEROSIS
     Route: 030
     Dates: start: 19960101, end: 20050301
  2. AVONEX [Suspect]
     Dates: start: 20050918

REACTIONS (9)
  - ANKLE FRACTURE [None]
  - DECREASED APPETITE [None]
  - DEPRESSION [None]
  - FALL [None]
  - FIBULA FRACTURE [None]
  - HYPOTONIA [None]
  - JOINT SPRAIN [None]
  - STRESS [None]
  - TIBIA FRACTURE [None]
